FAERS Safety Report 6467258-9 (Version None)
Quarter: 2009Q4

REPORT INFORMATION
  Report Type: 
  Country: None (occurrence: None)
  Receive Date: 20091130
  Receipt Date: 20091119
  Transmission Date: 20100525
  Serious: Yes (Other)
  Sender: FDA-Public Use
  Company Number: SPV1-2009-02350

PATIENT
  Age: 6 Year
  Sex: Male
  Weight: 25.4 kg

DRUGS (2)
  1. VYVANSE [Suspect]
     Indication: ATTENTION DEFICIT/HYPERACTIVITY DISORDER
     Dosage: 20 MG, 1X/DAY; QD; ORAL
     Route: 048
     Dates: start: 20091016, end: 20091103
  2. ZOLOFT [Concomitant]

REACTIONS (4)
  - ABNORMAL BEHAVIOUR [None]
  - ANGER [None]
  - MOOD ALTERED [None]
  - SUICIDAL IDEATION [None]
